FAERS Safety Report 12131588 (Version 1)
Quarter: 2016Q1

REPORT INFORMATION
  Report Type: Spontaneous
  Country: US (occurrence: None)
  Receive Date: 20160229
  Receipt Date: 20160229
  Transmission Date: 20160526
  Serious: Yes (Hospitalization)
  Sender: FDA-Public Use
  Company Number: None

PATIENT
  Age: 55 Year
  Sex: Female
  Weight: 106.8 kg

DRUGS (1)
  1. LITHIUM. [Suspect]
     Active Substance: LITHIUM
     Indication: BIPOLAR I DISORDER
     Route: 048
     Dates: start: 20150406, end: 20150506

REACTIONS (8)
  - Drug interaction [None]
  - Nausea [None]
  - Diarrhoea [None]
  - Vomiting [None]
  - Blood creatinine increased [None]
  - Electrocardiogram QT prolonged [None]
  - Toxicity to various agents [None]
  - Tremor [None]

NARRATIVE: CASE EVENT DATE: 20150428
